FAERS Safety Report 7380227-X (Version None)
Quarter: 2011Q1

REPORT INFORMATION
  Report Type: 
  Country: None (occurrence: None)
  Receive Date: 20110329
  Receipt Date: 20110126
  Transmission Date: 20110831
  Serious: No
  Sender: FDA-Public Use
  Company Number: A0909464A

PATIENT
  Age: 47 Year
  Sex: Female

DRUGS (4)
  1. ALEVE [Concomitant]
  2. CELEXA [Concomitant]
  3. LAMICTAL [Suspect]
     Dosage: 200MG PER DAY
     Route: 048
     Dates: start: 20101201
  4. BENADRYL [Concomitant]

REACTIONS (4)
  - PRURITUS [None]
  - LOCAL SWELLING [None]
  - HEADACHE [None]
  - THERMAL BURN [None]
